FAERS Safety Report 7240213-7 (Version None)
Quarter: 2011Q1

REPORT INFORMATION
  Report Type: 
  Country: None (occurrence: None)
  Receive Date: 20110124
  Receipt Date: 20110117
  Transmission Date: 20110831
  Serious: Yes (Other)
  Sender: FDA-Public Use
  Company Number: US-JNJFOC-20101205843

PATIENT
  Sex: Female

DRUGS (2)
  1. DARVOCET [Suspect]
     Indication: ILL-DEFINED DISORDER
  2. DURAGESIC-50 [Suspect]
     Indication: ILL-DEFINED DISORDER
     Route: 062

REACTIONS (4)
  - DRUG DIVERSION [None]
  - RENAL DISORDER [None]
  - TREATMENT NONCOMPLIANCE [None]
  - WITHDRAWAL SYNDROME [None]
